FAERS Safety Report 7300707-2 (Version None)
Quarter: 2011Q1

REPORT INFORMATION
  Report Type: 
  Country: None (occurrence: None)
  Receive Date: 20110207
  Receipt Date: 20110124
  Transmission Date: 20110831
  Serious: Yes (Disabling)
  Sender: FDA-Public Use
  Company Number: DSJ-2010-12637

PATIENT
  Age: 62 Year
  Sex: Female
  Weight: 38 kg

DRUGS (3)
  1. AMLODIN OD (AMLODIPINE BESILATE) [Concomitant]
  2. OLMETEC (OLMESARTAN MEDOXOMIL) (TABLETS) [Suspect]
     Indication: ESSENTIAL HYPERTENSION
     Dosage: 20 MG, PER ORAL
     Route: 048
     Dates: start: 20100615, end: 20100701
  3. COMELIAN (DILAZEP DIHYDROCHLORIDE) [Concomitant]

REACTIONS (3)
  - DIABETES MELLITUS INADEQUATE CONTROL [None]
  - TREMOR [None]
  - LACUNAR INFARCTION [None]
